FAERS Safety Report 15167331 (Version 1)
Quarter: 2018Q3

REPORT INFORMATION
  Report Type: Spontaneous
  Country: US (occurrence: US)
  Receive Date: 20180621
  Receipt Date: 20180621
  Transmission Date: 20181010
  Serious: Yes (Hospitalization)
  Sender: FDA-Public Use
  Company Number: None

PATIENT
  Age: 66 Year
  Sex: Male

DRUGS (1)
  1. RIVAROXABAN [Suspect]
     Active Substance: RIVAROXABAN
     Indication: DEEP VEIN THROMBOSIS
     Route: 048
     Dates: start: 20180605, end: 20180618

REACTIONS (5)
  - Epistaxis [None]
  - Haematuria [None]
  - Haemoglobin decreased [None]
  - Haemoptysis [None]
  - Haemorrhage [None]

NARRATIVE: CASE EVENT DATE: 20180618
